FAERS Safety Report 25806477 (Version 1)
Quarter: 2025Q3

REPORT INFORMATION
  Report Type: Spontaneous
  Country: EU (occurrence: EU)
  Receive Date: 20250916
  Receipt Date: 20250916
  Transmission Date: 20251021
  Serious: Yes (Other)
  Sender: NOVARTIS
  Company Number: EU-002147023-NVSC2025RO138406

PATIENT
  Age: 27 Year
  Sex: Male
  Weight: 117 kg

DRUGS (1)
  1. NILOTINIB [Suspect]
     Active Substance: NILOTINIB
     Indication: Chronic myeloid leukaemia
     Dosage: 300 MG, BID
     Route: 065
     Dates: start: 201407, end: 201607

REACTIONS (6)
  - Pulmonary sarcoidosis [Recovered/Resolved]
  - Diabetes mellitus [Unknown]
  - Philadelphia chromosome positive [Unknown]
  - Erythema nodosum [Unknown]
  - Hypertension [Unknown]
  - Dyslipidaemia [Unknown]

NARRATIVE: CASE EVENT DATE: 20150101
